FAERS Safety Report 6412010-3 (Version None)
Quarter: 2009Q4

REPORT INFORMATION
  Report Type: 
  Country: None (occurrence: None)
  Receive Date: 20091023
  Receipt Date: 20091014
  Transmission Date: 20100525
  Serious: Yes (Life-Threatening)
  Sender: FDA-Public Use
  Company Number: CA-JNJFOC-20090107108

PATIENT
  Sex: Male
  Weight: 98 kg

DRUGS (12)
  1. REMICADE [Suspect]
     Route: 042
     Dates: start: 20081203, end: 20090903
  2. REMICADE [Suspect]
     Route: 042
     Dates: start: 20081203, end: 20090903
  3. REMICADE [Suspect]
     Route: 042
     Dates: start: 20081203, end: 20090903
  4. REMICADE [Suspect]
     Route: 042
     Dates: start: 20081203, end: 20090903
  5. REMICADE [Suspect]
     Route: 042
     Dates: start: 20081203, end: 20090903
  6. REMICADE [Suspect]
     Indication: ANKYLOSING SPONDYLITIS
     Route: 042
     Dates: start: 20081203, end: 20090903
  7. ACETAMINOPHEN [Concomitant]
     Indication: PREMEDICATION
     Route: 048
  8. BENADRYL [Concomitant]
     Indication: PREMEDICATION
     Route: 042
  9. SOLU-CORTEF [Concomitant]
     Indication: PREMEDICATION
     Route: 042
  10. GRAVOL TAB [Concomitant]
     Indication: PREMEDICATION
     Route: 042
  11. AERIUS [Concomitant]
     Indication: PREMEDICATION
  12. ARTHROTEC [Concomitant]
     Route: 048

REACTIONS (6)
  - ABDOMINAL PAIN [None]
  - ANAPHYLACTIC REACTION [None]
  - CHEST PAIN [None]
  - FLUSHING [None]
  - INFUSION RELATED REACTION [None]
  - VOMITING [None]
